FAERS Safety Report 6547373-1 (Version None)
Quarter: 2010Q1

REPORT INFORMATION
  Report Type: 
  Country: None (occurrence: None)
  Receive Date: 20100122
  Receipt Date: 20100114
  Transmission Date: 20100710
  Serious: Yes (Hospitalization)
  Sender: FDA-Public Use
  Company Number: US-ABBOTT-10P-163-0619304-00

PATIENT
  Sex: Female

DRUGS (1)
  1. HUMIRA [Suspect]
     Indication: PSORIATIC ARTHROPATHY
     Dosage: ONLY RECEIVED 1 DOSE
     Route: 058
     Dates: start: 20091223

REACTIONS (4)
  - ATRIAL TACHYCARDIA [None]
  - CARDIAC FAILURE [None]
  - FALL [None]
  - VIRAL INFECTION [None]
